FAERS Safety Report 10869295 (Version 5)
Quarter: 2017Q3

REPORT INFORMATION
  Report Type: Spontaneous
  Country: DE (occurrence: DE)
  Receive Date: 20150226
  Receipt Date: 20170809
  Transmission Date: 20171127
  Serious: Yes (Hospitalization)
  Sender: FDA-Public Use
  Company Number: DE-ROCHE-1516346

PATIENT
  Age: 31 Year
  Sex: Female
  Weight: 75 kg

DRUGS (7)
  1. XOLAIR [Suspect]
     Active Substance: OMALIZUMAB
     Indication: CHRONIC SPONTANEOUS URTICARIA
     Dosage: 300 MG, (EVERY 3 WEEKS)
     Route: 030
     Dates: start: 20140401
  2. AERIUS (GERMANY) [Concomitant]
     Indication: SYSTEMIC MASTOCYTOSIS
     Route: 065
  3. XOLAIR [Suspect]
     Active Substance: OMALIZUMAB
     Indication: ANGIOEDEMA
     Dosage: 300 MG, (ONCE)
     Route: 030
     Dates: start: 20141226
  4. THYROXIN [Concomitant]
     Active Substance: LEVOTHYROXINE
     Indication: HYPOTHYROIDISM
     Dosage: 1 DF, QD
     Route: 048
     Dates: start: 201208
  5. XOLAIR [Suspect]
     Active Substance: OMALIZUMAB
     Dosage: UNK
     Route: 065
  6. AERIUS (GERMANY) [Concomitant]
     Indication: URTICARIA
     Dosage: 1 DF, QD
     Route: 048
     Dates: start: 201208
  7. XOLAIR [Suspect]
     Active Substance: OMALIZUMAB
     Indication: SYSTEMIC MASTOCYTOSIS
     Dosage: 300 MG
     Route: 030
     Dates: start: 20141215

REACTIONS (9)
  - Drug level decreased [Unknown]
  - Mastocytosis [Not Recovered/Not Resolved]
  - Incorrect route of drug administration [Unknown]
  - Angioedema [Recovered/Resolved]
  - Blood immunoglobulin E decreased [Unknown]
  - Product use in unapproved indication [Unknown]
  - Urticaria [Recovered/Resolved]
  - Drug ineffective [Unknown]
  - Product storage error [Unknown]

NARRATIVE: CASE EVENT DATE: 20141223
